FAERS Safety Report 7400003-9 (Version None)
Quarter: 2011Q2

REPORT INFORMATION
  Report Type: 
  Country: None (occurrence: None)
  Receive Date: 20110407
  Receipt Date: 20110325
  Transmission Date: 20111010
  Serious: Yes (Other)
  Sender: FDA-Public Use
  Company Number: PHHY2011BR05686

PATIENT
  Sex: Male

DRUGS (1)
  1. DIOVAN AMLO FIX [Suspect]
     Indication: HYPERTENSION
     Dosage: 320/10 MG, 1 TABLET ONCE A DAY (IN THE MORNING)
     Route: 048

REACTIONS (15)
  - POLLAKIURIA [None]
  - HYPERTENSION [None]
  - BACK PAIN [None]
  - TENSION HEADACHE [None]
  - NECK PAIN [None]
  - BLOOD PRESSURE INADEQUATELY CONTROLLED [None]
  - MICTURITION URGENCY [None]
  - FEELING ABNORMAL [None]
  - BLOOD PRESSURE DECREASED [None]
  - SENSATION OF HEAVINESS [None]
  - INFARCTION [None]
  - CEREBROVASCULAR ACCIDENT [None]
  - HEAD DISCOMFORT [None]
  - HEADACHE [None]
  - FEELING HOT [None]
